FAERS Safety Report 20179722 (Version 1)
Quarter: 2021Q4

REPORT INFORMATION
  Report Type: Report from Study
  Country: RU (occurrence: RU)
  Receive Date: 20211214
  Receipt Date: 20211214
  Transmission Date: 20220303
  Serious: Yes (Other)
  Sender: FDA-Public Use
  Company Number: RU-NOVARTISPH-NVSC2021RU278074

PATIENT
  Sex: Female

DRUGS (11)
  1. RIBOCICLIB [Suspect]
     Active Substance: RIBOCICLIB
     Indication: Product used for unknown indication
     Dosage: 600 MG
     Route: 065
     Dates: start: 202007
  2. ALPELISIB [Suspect]
     Active Substance: ALPELISIB
     Indication: Product used for unknown indication
     Dosage: 300 MG (2ND LINE OF HORMONAL THERAPY)
     Route: 065
     Dates: start: 202110, end: 202111
  3. ALPELISIB [Suspect]
     Active Substance: ALPELISIB
     Dosage: 300 MG
     Route: 065
     Dates: start: 20211105
  4. ALPELISIB [Suspect]
     Active Substance: ALPELISIB
     Dosage: 300 MG
     Route: 065
     Dates: start: 20211112, end: 20211123
  5. ALPELISIB [Suspect]
     Active Substance: ALPELISIB
     Dosage: 250 MG
     Route: 065
     Dates: start: 20211129
  6. ANASTROZOLE [Concomitant]
     Active Substance: ANASTROZOLE
     Indication: Product used for unknown indication
     Dosage: 1 MG
     Route: 065
     Dates: start: 202007
  7. FULVESTRANT [Concomitant]
     Active Substance: FULVESTRANT
     Indication: Product used for unknown indication
     Dosage: 500 MG (2ND LINE OF HORMONAL THERAPY)
     Route: 065
     Dates: start: 202108
  8. FULVESTRANT [Concomitant]
     Active Substance: FULVESTRANT
     Dosage: 500 MG (2ND LINE OF HORMONAL THERAPY)
     Route: 065
     Dates: start: 202110
  9. FULVESTRANT [Concomitant]
     Active Substance: FULVESTRANT
     Dosage: 500 MG
     Route: 065
     Dates: start: 20211105
  10. FULVESTRANT [Concomitant]
     Active Substance: FULVESTRANT
     Dosage: 500 MG
     Route: 065
     Dates: start: 20211112, end: 20211123
  11. FULVESTRANT [Concomitant]
     Active Substance: FULVESTRANT
     Dosage: 500 MG
     Route: 065
     Dates: start: 20211129

REACTIONS (2)
  - Disease progression [Not Recovered/Not Resolved]
  - Blood glucose increased [Not Recovered/Not Resolved]

NARRATIVE: CASE EVENT DATE: 20210801
